FAERS Safety Report 8818745 (Version 2)
Quarter: 2014Q3

REPORT INFORMATION
  Report Type: Report from Study
  Country: US (occurrence: US)
  Receive Date: 20121001
  Receipt Date: 20140923
  Transmission Date: 20150326
  Serious: Yes (Death, Other)
  Sender: FDA-Public Use
  Company Number: US-ROCHE-1129980

PATIENT
  Age: 52 Year
  Sex: Male

DRUGS (13)
  1. SPIRONOLACTONE. [Concomitant]
     Active Substance: SPIRONOLACTONE
     Indication: MICTURITION URGENCY
     Route: 048
  2. DILAUDID [Concomitant]
     Active Substance: HYDROMORPHONE HYDROCHLORIDE
     Indication: PAIN
     Route: 065
  3. CARBOPLATIN. [Concomitant]
     Active Substance: CARBOPLATIN
     Route: 042
  4. HYZAAR [Concomitant]
     Active Substance: HYDROCHLOROTHIAZIDE\LOSARTAN POTASSIUM
  5. DECADRON [Concomitant]
     Active Substance: DEXAMETHASONE
     Route: 042
  6. TAXOL [Concomitant]
     Active Substance: PACLITAXEL
  7. THALIDOMIDE [Concomitant]
     Active Substance: THALIDOMIDE
  8. FLUOROURACIL. [Concomitant]
     Active Substance: FLUOROURACIL
  9. HERCEPTIN [Suspect]
     Active Substance: TRASTUZUMAB
     Indication: PERITONEAL CARCINOMA METASTATIC
     Route: 042
  10. PROCRIT [Concomitant]
     Active Substance: ERYTHROPOIETIN
  11. PYRIDIUM [Concomitant]
     Active Substance: PHENAZOPYRIDINE
     Indication: MICTURITION URGENCY
     Route: 048
  12. KYTRIL [Concomitant]
     Active Substance: GRANISETRON HYDROCHLORIDE
  13. GEMZAR [Concomitant]
     Active Substance: GEMCITABINE HYDROCHLORIDE

REACTIONS (20)
  - Abdominal discomfort [Unknown]
  - Anaemia [Unknown]
  - Hepatomegaly [Unknown]
  - Nausea [Unknown]
  - Fatigue [Unknown]
  - Haematocrit decreased [Unknown]
  - Abdominal distension [Unknown]
  - Micturition urgency [Unknown]
  - Bacterial test positive [Unknown]
  - Death [Fatal]
  - Ascites [Unknown]
  - Diarrhoea [Unknown]
  - Asthenia [Unknown]
  - Dyspnoea [Unknown]
  - Metastasis [Unknown]
  - White blood cells urine [Unknown]
  - Pain [Unknown]
  - Stomatitis [Unknown]
  - Oedema [Unknown]
  - Alopecia [Unknown]

NARRATIVE: CASE EVENT DATE: 19990225
